FAERS Safety Report 16842538 (Version 1)
Quarter: 2019Q3

REPORT INFORMATION
  Report Type: Spontaneous
  Country: US (occurrence: US)
  Receive Date: 20190924
  Receipt Date: 20190924
  Transmission Date: 20191005
  Serious: No
  Sender: FDA-Public Use
  Company Number: US-BRISTOL-MYERS SQUIBB COMPANY-BMS-2019-090157

PATIENT
  Age: 60 Year
  Sex: Female

DRUGS (1)
  1. ORENCIA [Suspect]
     Active Substance: ABATACEPT
     Indication: RHEUMATOID ARTHRITIS
     Dosage: UNAV
     Route: 042
     Dates: start: 20190912

REACTIONS (6)
  - Oropharyngeal pain [Unknown]
  - Dyspnoea [Unknown]
  - Urticaria [Unknown]
  - Headache [Unknown]
  - Paraesthesia oral [Unknown]
  - Pruritus [Unknown]

NARRATIVE: CASE EVENT DATE: 20190912
